FAERS Safety Report 9596448 (Version 1)
Quarter: 2013Q4

REPORT INFORMATION
  Report Type: Spontaneous
  Country: SE (occurrence: SE)
  Receive Date: 20131004
  Receipt Date: 20131004
  Transmission Date: 20140711
  Serious: Yes (Other)
  Sender: FDA-Public Use
  Company Number: SE-TEVA-434931ISR

PATIENT
  Age: 66 Year
  Sex: Female

DRUGS (1)
  1. DOXYFERM [Suspect]
     Indication: BORRELIA INFECTION
     Route: 065

REACTIONS (1)
  - Neuralgia [Not Recovered/Not Resolved]
